FAERS Safety Report 7645205-1 (Version None)
Quarter: 2011Q3

REPORT INFORMATION
  Report Type: 
  Country: None (occurrence: None)
  Receive Date: 20110729
  Receipt Date: 20110726
  Transmission Date: 20111222
  Serious: Yes (Other)
  Sender: FDA-Public Use
  Company Number: FR-BRISTOL-MYERS SQUIBB COMPANY-15932700

PATIENT
  Age: 72 Year
  Sex: Female

DRUGS (2)
  1. CARBOPLATIN [Suspect]
     Route: 042
     Dates: start: 20080618, end: 20090201
  2. TAXOL [Suspect]
     Route: 042
     Dates: start: 20080618, end: 20090201

REACTIONS (2)
  - PARAESTHESIA [None]
  - CATARACT [None]
